FAERS Safety Report 7576101-6 (Version None)
Quarter: 2011Q2

REPORT INFORMATION
  Report Type: 
  Country: None (occurrence: None)
  Receive Date: 20110628
  Receipt Date: 20110610
  Transmission Date: 20111010
  Serious: Yes (Hospitalization)
  Sender: FDA-Public Use
  Company Number: DE-BAYER-2011-017123

PATIENT
  Age: 47 Year
  Sex: Female
  Weight: 67 kg

DRUGS (7)
  1. SORAFENIB (RAF KINASE INHIBITOR) [Suspect]
     Indication: BREAST CANCER
     Dosage: 600 MG, QD
     Route: 048
     Dates: start: 20101223, end: 20110210
  2. PACLITAXEL [Suspect]
     Indication: BREAST CANCER
     Dosage: 80 MG/M2, OW
     Route: 042
     Dates: start: 20101223, end: 20110217
  3. NOVALGIN [Concomitant]
     Dosage: UNK
     Dates: start: 20110219, end: 20110223
  4. PCM [Concomitant]
     Dosage: UNK
     Dates: start: 20110219, end: 20110226
  5. PACLITAXEL [Suspect]
     Dosage: 80 MG/M2, OW
     Route: 042
     Dates: start: 20110310
  6. RADEDORM [Concomitant]
     Dosage: 5 MG, UNK
     Dates: start: 20110228, end: 20110228
  7. SORAFENIB (RAF KINASE INHIBITOR) [Suspect]
     Dosage: 600 MG, QD
     Route: 048
     Dates: start: 20110310, end: 20110316

REACTIONS (7)
  - INFLUENZA LIKE ILLNESS [None]
  - GENERAL PHYSICAL HEALTH DETERIORATION [None]
  - COUGH [None]
  - PULMONARY EMBOLISM [None]
  - BONE PAIN [None]
  - DEEP VEIN THROMBOSIS [None]
  - PYREXIA [None]
